FAERS Safety Report 4437860-4 (Version None)
Quarter: 2004Q3

REPORT INFORMATION
  Report Type: 
  Country: None (occurrence: None)
  Receive Date: 20040827
  Receipt Date: 20040728
  Transmission Date: 20050211
  Serious: Yes (Death, Hospitalization)
  Sender: FDA-Public Use
  Company Number: 8602

PATIENT
  Age: 35 Year
  Sex: Female

DRUGS (2)
  1. METHOTREXATE [Suspect]
     Dosage: 1750 MG FREQ IV
     Route: 042
     Dates: start: 20040702, end: 20040703
  2. CYTARABINE [Concomitant]

REACTIONS (3)
  - ANAPHYLACTIC SHOCK [None]
  - HEPATITIS [None]
  - MUCOSAL INFLAMMATION [None]
